FAERS Safety Report 12251842 (Version 2)
Quarter: 2016Q2

REPORT INFORMATION
  Report Type: Spontaneous
  Country: US (occurrence: US)
  Receive Date: 20160411
  Receipt Date: 20160427
  Transmission Date: 20160815
  Serious: Yes (Hospitalization)
  Sender: FDA-Public Use
  Company Number: US-BEH-2016060785

PATIENT
  Sex: Male
  Weight: 63 kg

DRUGS (9)
  1. LACTOSE [Concomitant]
     Active Substance: LACTOSE
  2. VITAMIN C [Concomitant]
     Active Substance: ASCORBIC ACID
  3. HIZENTRA [Suspect]
     Active Substance: HUMAN IMMUNOGLOBULIN G
     Indication: IMMUNODEFICIENCY COMMON VARIABLE
     Route: 058
  4. OXYCONTIN [Concomitant]
     Active Substance: OXYCODONE HYDROCHLORIDE
  5. HIZENTRA [Suspect]
     Active Substance: HUMAN IMMUNOGLOBULIN G
     Dosage: TWICE PER WEEK
     Route: 058
     Dates: start: 20101228
  6. EPIPEN [Concomitant]
     Active Substance: EPINEPHRINE
  7. OXYCODONE [Concomitant]
     Active Substance: OXYCODONE
  8. DIPHENHYDRAMINE. [Concomitant]
     Active Substance: DIPHENHYDRAMINE
  9. PROTONIX [Concomitant]
     Active Substance: PANTOPRAZOLE SODIUM

REACTIONS (2)
  - Device related infection [Unknown]
  - Pneumonia [Unknown]
